FAERS Safety Report 24361693 (Version 7)
Quarter: 2025Q1

REPORT INFORMATION
  Report Type: Report from Study
  Country: US (occurrence: US)
  Receive Date: 20240925
  Receipt Date: 20250106
  Transmission Date: 20250409
  Serious: Yes (Hospitalization, Other)
  Sender: ABBVIE
  Company Number: US-ABBVIE-5930552

PATIENT
  Age: 36 Year
  Sex: Female
  Weight: 100 kg

DRUGS (4)
  1. RINVOQ [Suspect]
     Active Substance: UPADACITINIB
     Indication: Rheumatoid arthritis
     Route: 048
     Dates: start: 20220622, end: 20231210
  2. PLAQUENIL [Concomitant]
     Active Substance: HYDROXYCHLOROQUINE SULFATE
     Indication: Product used for unknown indication
     Dates: start: 20210601, end: 20231210
  3. AMITRIPTYLINE [Concomitant]
     Active Substance: AMITRIPTYLINE
     Indication: Product used for unknown indication
  4. COVID-19 vaccine [Concomitant]
     Indication: COVID-19 immunisation

REACTIONS (9)
  - Post abortion haemorrhage [Unknown]
  - Abortion spontaneous [Unknown]
  - COVID-19 [Unknown]
  - Urinary tract infection [Recovered/Resolved]
  - Trichomoniasis [Unknown]
  - Urinary tract infection [Recovered/Resolved]
  - Upper respiratory tract infection [Unknown]
  - Maternal exposure during pregnancy [Unknown]
  - Haemorrhage [Recovered/Resolved]

NARRATIVE: CASE EVENT DATE: 20231030
